FAERS Safety Report 4945745-X (Version None)
Quarter: 2006Q1

REPORT INFORMATION
  Report Type: 
  Country: None (occurrence: None)
  Receive Date: 20060316
  Receipt Date: 20060310
  Transmission Date: 20060701
  Serious: Yes (Hospitalization)
  Sender: FDA-Public Use
  Company Number: FR-AVENTIS-200610947FR

PATIENT
  Sex: Female

DRUGS (2)
  1. KETEK [Suspect]
  2. TRITHERAPY NOS [Concomitant]

REACTIONS (1)
  - RENAL FAILURE ACUTE [None]
